FAERS Safety Report 20497380 (Version 1)
Quarter: 2022Q1

REPORT INFORMATION
  Report Type: Report from Study
  Country: CA (occurrence: None)
  Receive Date: 20220221
  Receipt Date: 20220221
  Transmission Date: 20220423
  Serious: Yes (Disabling, Other)
  Sender: FDA-Public Use
  Company Number: 2022A056010

PATIENT
  Sex: Female

DRUGS (4)
  1. FASENRA [Suspect]
     Active Substance: BENRALIZUMAB
     Indication: Asthma
     Dosage: 30.0MG UNKNOWN
     Route: 058
     Dates: start: 20211012
  2. PREDNISONE [Concomitant]
     Active Substance: PREDNISONE
  3. VENTOLIN [Concomitant]
     Active Substance: ALBUTEROL SULFATE
  4. ZENHALE [Concomitant]
     Active Substance: FORMOTEROL FUMARATE\MOMETASONE FUROATE

REACTIONS (3)
  - Asthma [Unknown]
  - Insomnia [Unknown]
  - Drug ineffective [Unknown]
